FAERS Safety Report 8518338-5 (Version None)
Quarter: 2012Q3

REPORT INFORMATION
  Report Type: 
  Country: None (occurrence: None)
  Receive Date: 20120718
  Receipt Date: 20120202
  Transmission Date: 20120928
  Serious: No
  Sender: FDA-Public Use
  Company Number: US-BRISTOL-MYERS SQUIBB COMPANY-16380651

PATIENT
  Sex: Male

DRUGS (1)
  1. WARFARIN SODIUM [Suspect]
     Indication: PULMONARY THROMBOSIS
     Dosage: RECEIVING FOR 3 MONTHS

REACTIONS (2)
  - WEIGHT INCREASED [None]
  - INCREASED APPETITE [None]
